FAERS Safety Report 14746807 (Version 7)
Quarter: 2019Q2

REPORT INFORMATION
  Report Type: Report from Study
  Country: US (occurrence: US)
  Receive Date: 20180411
  Receipt Date: 20190604
  Transmission Date: 20190711
  Serious: Yes (Hospitalization, Other)
  Sender: FDA-Public Use
  Company Number: US-TAKEDA-2018TUS009107

PATIENT
  Age: 76 Year
  Sex: Female

DRUGS (9)
  1. PONATINIB [Suspect]
     Active Substance: PONATINIB
     Indication: CHRONIC MYELOID LEUKAEMIA
     Dosage: 30 MILLIGRAM, QD
     Route: 048
     Dates: start: 201401
  2. ARIPIPRAZOLE. [Concomitant]
     Active Substance: ARIPIPRAZOLE
     Dosage: UNK
  3. OMEPRAZOLE. [Concomitant]
     Active Substance: OMEPRAZOLE
     Dosage: UNK
  4. ADVAIR HFA [Concomitant]
     Active Substance: FLUTICASONE PROPIONATE\SALMETEROL XINAFOATE
     Dosage: UNK
  5. NOVOLOG [Concomitant]
     Active Substance: INSULIN ASPART
     Dosage: UNK
  6. PONATINIB [Suspect]
     Active Substance: PONATINIB
     Dosage: 15 MILLIGRAM, QD
     Route: 048
     Dates: start: 201402
  7. SPIRIVA [Concomitant]
     Active Substance: TIOTROPIUM BROMIDE MONOHYDRATE
  8. LANTUS [Concomitant]
     Active Substance: INSULIN GLARGINE
     Dosage: UNK
  9. AMPHETAMINE [Concomitant]
     Active Substance: AMPHETAMINE
     Dosage: UNK

REACTIONS (15)
  - Fatigue [Unknown]
  - Cough [Unknown]
  - Dizziness [Unknown]
  - Muscular weakness [Unknown]
  - Rhinorrhoea [Unknown]
  - Product dose omission [Unknown]
  - Fall [Unknown]
  - Therapeutic procedure [Unknown]
  - Diarrhoea [Unknown]
  - Somnolence [Unknown]
  - Constipation [Unknown]
  - Throat irritation [Unknown]
  - Wrong dose [Unknown]
  - Nausea [Unknown]
  - Blood glucose decreased [Unknown]

NARRATIVE: CASE EVENT DATE: 20180927
